FAERS Safety Report 22534233 (Version 1)
Quarter: 2023Q2

REPORT INFORMATION
  Report Type: Spontaneous
  Country: US (occurrence: US)
  Receive Date: 20230608
  Receipt Date: 20230608
  Transmission Date: 20230721
  Serious: Yes (Other)
  Sender: FDA-Public Use
  Company Number: US-EyePoint Pharmaceuticals, Inc.-US-EYP-23-00176

PATIENT
  Sex: Female

DRUGS (2)
  1. YUTIQ [Suspect]
     Active Substance: FLUOCINOLONE ACETONIDE
     Indication: Cystoid macular oedema
     Dosage: IN THE POSTERIOR CHAMBER OF THE RIGHT EYE/OD
     Route: 031
     Dates: start: 20230109, end: 20230109
  2. YUTIQ [Suspect]
     Active Substance: FLUOCINOLONE ACETONIDE

REACTIONS (3)
  - Corneal oedema [Not Recovered/Not Resolved]
  - Device dislocation [Not Recovered/Not Resolved]
  - Off label use [Unknown]
